FAERS Safety Report 8798036 (Version 1)
Quarter: 2012Q4

REPORT INFORMATION
  Report Type: 
  Country: GB (occurrence: GB)
  Receive Date: 20120920
  Receipt Date: 20120920
  Transmission Date: 20130627
  Serious: Yes (Life-Threatening)
  Sender: FDA-Public Use
  Company Number: GB-AMGEN-GBRSP2012058978

PATIENT
  Sex: Male

DRUGS (3)
  1. ENBREL [Suspect]
     Indication: RHEUMATOID ARTHRITIS
     Dosage: 40 mg, weekly
     Route: 058
     Dates: start: 20111212, end: 20120824
  2. METHOTREXATE [Concomitant]
     Dosage: 20 mg, weekly
     Route: 048
     Dates: start: 19990101, end: 20120824
  3. LEFLUNOMIDE [Concomitant]
     Dosage: 10 mg, 1x/day
     Route: 048
     Dates: start: 20120101

REACTIONS (1)
  - Metastatic squamous cell carcinoma [Unknown]
